FAERS Safety Report 19458652 (Version 1)
Quarter: 2021Q2

REPORT INFORMATION
  Report Type: Spontaneous
  Country: US (occurrence: US)
  Receive Date: 20210624
  Receipt Date: 20210624
  Transmission Date: 20210717
  Serious: Yes (Hospitalization)
  Sender: FDA-Public Use
  Company Number: None

PATIENT
  Sex: Female

DRUGS (25)
  1. MYCOPHENOLIC [Concomitant]
     Active Substance: MYCOPHENOLIC ACID
  2. ONDANSETRON [Concomitant]
     Active Substance: ONDANSETRON
  3. SUCRALFATE. [Concomitant]
     Active Substance: SUCRALFATE
  4. ESOMEPRA MAG [Concomitant]
  5. CARVEDILOL. [Concomitant]
     Active Substance: CARVEDILOL
  6. PILOCARPINE. [Concomitant]
     Active Substance: PILOCARPINE
  7. TADALAFIL 20 MG TAB [Suspect]
     Active Substance: TADALAFIL
     Indication: PULMONARY ARTERIAL HYPERTENSION
     Route: 048
     Dates: start: 20181102
  8. NAPROXEN. [Concomitant]
     Active Substance: NAPROXEN
  9. NITROFURANTIN [Concomitant]
     Active Substance: NITROFURANTOIN
  10. VALACYCLOVIR [Concomitant]
     Active Substance: VALACYCLOVIR HYDROCHLORIDE
  11. AMBRISENTAN 10 MG TAB [Suspect]
     Active Substance: AMBRISENTAN
     Indication: PULMONARY ARTERIAL HYPERTENSION
     Dosage: ?          OTHER FREQUENCY:QPM;?
     Route: 048
     Dates: start: 20190905
  12. FOLBIC [Concomitant]
     Active Substance: CYANOCOBALAMIN\FOLIC ACID\PYRIDOXINE
  13. HYDROCO/APAP [Concomitant]
     Active Substance: ACETAMINOPHEN\HYDROCODONE
  14. CEFDINIR. [Concomitant]
     Active Substance: CEFDINIR
  15. NYSTATIN. [Concomitant]
     Active Substance: NYSTATIN
  16. PROMETHEGAN [Concomitant]
     Active Substance: PROMETHAZINE HYDROCHLORIDE
  17. TIZANIDINE. [Concomitant]
     Active Substance: TIZANIDINE
  18. VITAMIN D [Concomitant]
     Active Substance: VITAMIN D NOS
  19. CYCLOBENZAPR [Concomitant]
     Active Substance: CYCLOBENZAPRINE
  20. ESTRADIOL. [Concomitant]
     Active Substance: ESTRADIOL
  21. GABAPENTIN. [Concomitant]
     Active Substance: GABAPENTIN
  22. ESZOPICLONE. [Concomitant]
     Active Substance: ESZOPICLONE
  23. HYOSCYAMINE. [Concomitant]
     Active Substance: HYOSCYAMINE
  24. LEVOCETIRIZI [Concomitant]
  25. MONTELUKAST [Concomitant]
     Active Substance: MONTELUKAST SODIUM

REACTIONS (3)
  - Cystitis [None]
  - Sepsis [None]
  - Kidney infection [None]
